FAERS Safety Report 9250645 (Version 2)
Quarter: 2013Q4

REPORT INFORMATION
  Report Type: Spontaneous
  Country: US (occurrence: US)
  Receive Date: 20130424
  Receipt Date: 20131220
  Transmission Date: 20140711
  Serious: No
  Sender: FDA-Public Use
  Company Number: US-ASTRAZENECA-2013SE27515

PATIENT
  Age: 774 Month
  Sex: Female
  Weight: 81.6 kg

DRUGS (6)
  1. NEXIUM [Suspect]
     Indication: GASTROOESOPHAGEAL REFLUX DISEASE
     Dosage: DAILY
     Route: 048
     Dates: start: 200503
  2. NEXIUM [Suspect]
     Indication: GASTROOESOPHAGEAL REFLUX DISEASE
     Route: 048
     Dates: start: 20111004
  3. DIOVAN [Concomitant]
  4. LIPITOR [Concomitant]
  5. SYNTHROID [Concomitant]
  6. ATORVASTATIN [Concomitant]

REACTIONS (11)
  - Osteoporosis [Unknown]
  - Bone disorder [Unknown]
  - Multiple fractures [Unknown]
  - Injury [Unknown]
  - Fall [Unknown]
  - Anxiety [Unknown]
  - Poor quality sleep [Unknown]
  - Cataract [Unknown]
  - Arthritis [Unknown]
  - Gait disturbance [Unknown]
  - Muscular weakness [Unknown]
